FAERS Safety Report 19762501 (Version 2)
Quarter: 2021Q3

REPORT INFORMATION
  Report Type: Report from Study
  Country: US (occurrence: US)
  Receive Date: 20210830
  Receipt Date: 20210920
  Transmission Date: 20211014
  Serious: Yes (Other)
  Sender: FDA-Public Use
  Company Number: US-MYLANLABS-2020M1052334

PATIENT

DRUGS (2)
  1. GLATIRAMER ACETATE INJECTION [Suspect]
     Active Substance: GLATIRAMER ACETATE
     Dosage: UNK
  2. GLATIRAMER ACETATE INJECTION [Suspect]
     Active Substance: GLATIRAMER ACETATE
     Indication: RELAPSING-REMITTING MULTIPLE SCLEROSIS
     Dosage: 40 MILLIGRAM, 3XW, 40 MG/ML, SQ 3X/ WEEKLY
     Route: 058

REACTIONS (7)
  - Visual impairment [Unknown]
  - Injection site pain [Unknown]
  - Vision blurred [Unknown]
  - Halo vision [Unknown]
  - Photophobia [Unknown]
  - Multiple sclerosis relapse [Unknown]
  - Injection site mass [Unknown]
